FAERS Safety Report 12649091 (Version 1)
Quarter: 2016Q3

REPORT INFORMATION
  Report Type: Other
  Country: None (occurrence: None)
  Receive Date: 20160812
  Receipt Date: 20160812
  Transmission Date: 20161109
  Serious: Yes (Other)
  Sender: FDA-Public Use
  Company Number: EU-ACIC FINE CHEMICALS INC-1056262

PATIENT
  Age: 79 Year
  Sex: Male

DRUGS (1)
  1. TRANEXAMIC ACID. [Suspect]
     Active Substance: TRANEXAMIC ACID

REACTIONS (2)
  - Visual acuity reduced [Recovering/Resolving]
  - Retinal disorder [Recovering/Resolving]
